FAERS Safety Report 4582456-7 (Version None)
Quarter: 2005Q1

REPORT INFORMATION
  Report Type: 
  Country: None (occurrence: None)
  Receive Date: 20050211
  Receipt Date: 20050211
  Transmission Date: 20050727
  Serious: Yes (Other)
  Sender: FDA-Public Use
  Company Number: None

PATIENT
  Age: 25 Year
  Sex: Male
  Weight: 63.5036 kg

DRUGS (4)
  1. LEVAQUIN [Suspect]
     Indication: SINUSITIS
     Dosage: 500MG, 1 TIME/DAY
     Dates: start: 20030220, end: 20030223
  2. FLAGGYL [Concomitant]
  3. LEXAPRO [Concomitant]
  4. KLONOPIN [Concomitant]

REACTIONS (5)
  - ARTHRITIS [None]
  - CONDITION AGGRAVATED [None]
  - EMOTIONAL DISORDER [None]
  - INSOMNIA [None]
  - NERVOUSNESS [None]
